FAERS Safety Report 24781585 (Version 1)
Quarter: 2024Q4

REPORT INFORMATION
  Report Type: Other
  Country: CN (occurrence: CN)
  Receive Date: 20241227
  Receipt Date: 20241227
  Transmission Date: 20250115
  Serious: Yes (Life-Threatening, Other)
  Sender: QILU PHARMACEUTICAL (HAINAN) CO., LTD.
  Company Number: CN-QILU PHARMACEUTICAL (HAINAN) CO.  LTD.-QLH-000338-2024

PATIENT
  Age: 49 Year
  Sex: Male
  Weight: 83.0 kg

DRUGS (2)
  1. IRINOTECAN HYDROCHLORIDE [Suspect]
     Active Substance: IRINOTECAN HYDROCHLORIDE
     Indication: Rectal adenocarcinoma
     Dosage: 300 MG ONCE DAILY
     Route: 041
     Dates: start: 20241206, end: 20241206
  2. SODIUM CHLORIDE [Concomitant]
     Active Substance: SODIUM CHLORIDE
     Indication: Rectal adenocarcinoma
     Dosage: 250 ML ONCE DAILY
     Route: 041
     Dates: start: 20241206, end: 20241206

REACTIONS (1)
  - Anaphylactic shock [Recovered/Resolved]

NARRATIVE: CASE EVENT DATE: 20241206
